FAERS Safety Report 10162434 (Version 1)
Quarter: 2014Q2

REPORT INFORMATION
  Report Type: Spontaneous
  Country: US (occurrence: US)
  Receive Date: 20140509
  Receipt Date: 20140509
  Transmission Date: 20141212
  Serious: No
  Sender: FDA-Public Use
  Company Number: US-GLAXOSMITHKLINE-A1023116A

PATIENT
  Age: 56 Year
  Sex: Female

DRUGS (3)
  1. ALTABAX [Suspect]
     Indication: INFECTED SKIN ULCER
     Dosage: 1APP PER DAY
     Route: 061
     Dates: start: 20130502, end: 20130502
  2. BIAFINE [Concomitant]
  3. SILVADENE [Concomitant]

REACTIONS (3)
  - Application site pain [Recovered/Resolved]
  - Pain [Recovered/Resolved]
  - Skin burning sensation [Recovered/Resolved]
